FAERS Safety Report 18645187 (Version 4)
Quarter: 2021Q2

REPORT INFORMATION
  Report Type: Spontaneous
  Country: US (occurrence: US)
  Receive Date: 20201221
  Receipt Date: 20210430
  Transmission Date: 20210717
  Serious: No
  Sender: FDA-Public Use
  Company Number: US-PFIZER INC-2020502757

PATIENT
  Age: 68 Year
  Sex: Female

DRUGS (3)
  1. IBRANCE [Suspect]
     Active Substance: PALBOCICLIB
     Dosage: 100 MG
  2. FASLODEX [Concomitant]
     Active Substance: FULVESTRANT
     Dosage: UNK
  3. IBRANCE [Suspect]
     Active Substance: PALBOCICLIB
     Dosage: 100 MG, CYCLIC (13 DAYS ON AND THEN 14 DAYS OFF)

REACTIONS (9)
  - Off label use [Unknown]
  - Neoplasm progression [Unknown]
  - Red blood cell count abnormal [Unknown]
  - Anxiety [Unknown]
  - Hypotension [Unknown]
  - Emotional distress [Unknown]
  - White blood cell count abnormal [Unknown]
  - Product use issue [Unknown]
  - Depression [Unknown]
